FAERS Safety Report 19412720 (Version 1)
Quarter: 2021Q2

REPORT INFORMATION
  Report Type: Spontaneous
  Country: US (occurrence: US)
  Receive Date: 20210614
  Receipt Date: 20210614
  Transmission Date: 20210717
  Serious: No
  Sender: FDA-Public Use
  Company Number: US-PFIZER INC-2019455131

PATIENT
  Age: 75 Year
  Sex: Female
  Weight: 86.18 kg

DRUGS (1)
  1. TOVIAZ [Suspect]
     Active Substance: FESOTERODINE FUMARATE
     Indication: POLYURIA
     Dosage: 8 MG, DAILY (1 TABLET BY MOUTH DAILY IN THE MORNING)
     Route: 048

REACTIONS (1)
  - Restlessness [Unknown]
